FAERS Safety Report 5236754-4 (Version None)
Quarter: 2007Q1

REPORT INFORMATION
  Report Type: 
  Country: None (occurrence: None)
  Receive Date: 20061208
  Receipt Date: 20050217
  Transmission Date: 20070707
  Serious: Yes (Other)
  Sender: FDA-Public Use
  Company Number: 2005UW01087

PATIENT
  Age: 61 Year
  Sex: Male
  Weight: 74.842 kg

DRUGS (5)
  1. CRESTOR [Suspect]
     Indication: BLOOD CHOLESTEROL INCREASED
     Dosage: 10 MG QD PO
     Route: 048
     Dates: start: 20040419, end: 20041026
  2. CRESTOR [Suspect]
     Indication: CORONARY ARTERY DISEASE
     Dosage: 10 MG QD PO
     Route: 048
     Dates: start: 20040419, end: 20041026
  3. TOPROL-XL [Concomitant]
  4. PLAVIX [Concomitant]
  5. ASPIRIN [Concomitant]

REACTIONS (5)
  - ALANINE AMINOTRANSFERASE INCREASED [None]
  - CARDIOVASCULAR DISORDER [None]
  - HEPATIC ENZYME INCREASED [None]
  - HYPERTENSION [None]
  - MYALGIA [None]
